FAERS Safety Report 5719026-0 (Version None)
Quarter: 2008Q2

REPORT INFORMATION
  Report Type: 
  Country: None (occurrence: None)
  Receive Date: 20080423
  Receipt Date: 20080414
  Transmission Date: 20081010
  Serious: Yes (Hospitalization)
  Sender: FDA-Public Use
  Company Number: 2008AL002258

PATIENT
  Age: 67 Year
  Sex: Male

DRUGS (3)
  1. TRAMADOL HCL [Suspect]
     Dosage: 100 MG;OTIC
     Dates: start: 20080327, end: 20080403
  2. ZOPICLONE [Concomitant]
  3. PARACETAMOL [Concomitant]

REACTIONS (1)
  - PSYCHOTIC DISORDER [None]
